FAERS Safety Report 5685230-3 (Version None)
Quarter: 2008Q1

REPORT INFORMATION
  Report Type: 
  Country: None (occurrence: None)
  Receive Date: 20080328
  Receipt Date: 20080318
  Transmission Date: 20080703
  Serious: Yes (Other)
  Sender: FDA-Public Use
  Company Number: CH-ELI_LILLY_AND_COMPANY-CH200803004602

PATIENT
  Age: 23 Year
  Sex: Female
  Weight: 83 kg

DRUGS (4)
  1. CYMBALTA [Suspect]
     Indication: DEPRESSION
     Dosage: 60 MG, DAILY (1/D)
     Route: 048
     Dates: start: 20070224, end: 20071003
  2. ZYPREXA [Suspect]
     Indication: MAJOR DEPRESSION
     Dosage: MG, DAILY (1/D)
     Route: 048
     Dates: start: 20070223, end: 20070424
  3. ZYPREXA [Suspect]
     Dosage: 2.5 MG, DAILY (1/D)
     Route: 048
     Dates: start: 20070425, end: 20070531
  4. ABILIFY [Concomitant]
     Dosage: 5 MG, DAILY (1/D)
     Route: 048
     Dates: start: 20070824

REACTIONS (2)
  - PRURITUS GENERALISED [None]
  - WEIGHT INCREASED [None]
